FAERS Safety Report 6538042-2 (Version None)
Quarter: 2010Q1

REPORT INFORMATION
  Report Type: 
  Country: None (occurrence: None)
  Receive Date: 20100114
  Receipt Date: 20100105
  Transmission Date: 20100710
  Serious: Yes (Hospitalization, Other)
  Sender: FDA-Public Use
  Company Number: FR-WYE-H12951110

PATIENT
  Sex: Male

DRUGS (2)
  1. INIPOMP [Suspect]
     Route: 048
     Dates: end: 20090629
  2. PRAVASTATIN SODIUM [Suspect]
     Dosage: 20 MG DAILY FROM UNKNOWN TO 28-JUN-2009, REDUCED TO 10 MG DAILY FROM 29-JUN-2009
     Route: 065

REACTIONS (6)
  - BLOOD CREATININE INCREASED [None]
  - CREATININE RENAL CLEARANCE DECREASED [None]
  - DIARRHOEA [None]
  - ISCHAEMIC NEUROPATHY [None]
  - NEUROPATHY PERIPHERAL [None]
  - RHABDOMYOLYSIS [None]
